FAERS Safety Report 6596308-4 (Version None)
Quarter: 2010Q1

REPORT INFORMATION
  Report Type: 
  Country: None (occurrence: None)
  Receive Date: 20100219
  Receipt Date: 20100219
  Transmission Date: 20100710
  Serious: No
  Sender: FDA-Public Use
  Company Number: None

PATIENT
  Age: 75 Year
  Sex: Male

DRUGS (2)
  1. THALIDOMIDE [Suspect]
     Indication: MULTIPLE MYELOMA
     Dosage: 100 MG EVERY DAY PO
     Route: 048
     Dates: start: 20080606, end: 20090327
  2. THALIDOMIDE [Suspect]
     Dosage: 50 MG EVERY DAY PO
     Route: 048
     Dates: start: 20090327, end: 20090426

REACTIONS (4)
  - HYPOAESTHESIA [None]
  - NEUROPATHY PERIPHERAL [None]
  - PROTEIN TOTAL DECREASED [None]
  - VISION BLURRED [None]
